FAERS Safety Report 9047294 (Version 1)
Quarter: 2013Q1

REPORT INFORMATION
  Report Type: Report from Study
  Country: US (occurrence: US)
  Receive Date: 20130131
  Receipt Date: 20130131
  Transmission Date: 20140127
  Serious: No
  Sender: FDA-Public Use
  Company Number: US-ABBOTT-12P-163-0979491-00

PATIENT
  Age: 30 Year
  Sex: Female

DRUGS (13)
  1. HUMIRA [Suspect]
     Indication: PSORIASIS
     Dates: start: 20120809
  2. LEVOTHYROXINE [Concomitant]
     Indication: HYPOTHYROIDISM
     Dosage: 0.112MG X 2 TABS EVERY A.M.
  3. METFORMIN [Concomitant]
     Indication: HORMONE LEVEL ABNORMAL
  4. SPIRONOLACTONE [Concomitant]
     Indication: HORMONE LEVEL ABNORMAL
  5. VITAMIN D [Concomitant]
     Indication: VITAMIN D DEFICIENCY
     Dosage: 2 TABS DAILY
  6. FISH OIL [Concomitant]
     Indication: PRODUCT USED FOR UNKNOWN INDICATION
     Dosage: 1 TAB DAILY
  7. VITAMIN B [Concomitant]
     Indication: PRODUCT USED FOR UNKNOWN INDICATION
     Dosage: 1 TAB DAILY
  8. MAGNESIUM [Concomitant]
     Indication: PRODUCT USED FOR UNKNOWN INDICATION
     Dosage: 1 TAB DAILY
  9. TACLONEX OINTMENT [Concomitant]
     Indication: PSORIASIS
  10. FACIAL CREAM [Concomitant]
     Indication: PSORIASIS
  11. SULFONAMIDE FACE WASH [Concomitant]
     Indication: PSORIASIS
  12. LOCOID CREAM [Concomitant]
     Indication: PRODUCT USED FOR UNKNOWN INDICATION
     Dosage: APPLY SPARINGLY; DAILY OR EVERY OTHER DAY
  13. UNKNOWN CREAMS AND LOTIONS [Concomitant]
     Indication: PRODUCT USED FOR UNKNOWN INDICATION

REACTIONS (2)
  - Injection site bruising [Not Recovered/Not Resolved]
  - Injection site haemorrhage [Not Recovered/Not Resolved]
